FAERS Safety Report 18601112 (Version 1)
Quarter: 2020Q4

REPORT INFORMATION
  Report Type: Spontaneous
  Country: US (occurrence: US)
  Receive Date: 20201210
  Receipt Date: 20201210
  Transmission Date: 20210114
  Serious: Yes (Hospitalization)
  Sender: FDA-Public Use
  Company Number: None

PATIENT
  Age: 45 Year
  Sex: Male
  Weight: 75.15 kg

DRUGS (2)
  1. AMOX/CLAV 875 - 125 [Concomitant]
  2. CLINDAMYCIN HYDROCHLORIDE. [Suspect]
     Active Substance: CLINDAMYCIN HYDROCHLORIDE
     Indication: DENTAL CARE
     Dosage: ?          QUANTITY:1 CAPSULE(S);?
     Route: 048
     Dates: start: 20201105, end: 20201116

REACTIONS (7)
  - Abdominal pain upper [None]
  - Swelling face [None]
  - Haemorrhoids [None]
  - Hypertension [None]
  - Inflammation [None]
  - Diarrhoea [None]
  - Cellulitis [None]

NARRATIVE: CASE EVENT DATE: 20201202
